FAERS Safety Report 11804350 (Version 2)
Quarter: 2016Q1

REPORT INFORMATION
  Report Type: Report from Study
  Country: US (occurrence: US)
  Receive Date: 20151204
  Receipt Date: 20160121
  Transmission Date: 20160525
  Serious: Yes (Disabling, Other)
  Sender: FDA-Public Use
  Company Number: US-REGENERON PHARMACEUTICALS, INC.-2015-14359

PATIENT

DRUGS (1)
  1. EYLEA [Suspect]
     Active Substance: AFLIBERCEPT
     Indication: NEOVASCULAR AGE-RELATED MACULAR DEGENERATION
     Dosage: 2.0 MG MILLIGRAM(S) (0.05 ML) (2 UNITS), OS, AS NEEDED
     Route: 031
     Dates: start: 20140528, end: 20141022

REACTIONS (1)
  - Intervertebral disc protrusion [Unknown]
